FAERS Safety Report 25762731 (Version 1)
Quarter: 2025Q3

REPORT INFORMATION
  Report Type: Spontaneous
  Country: CN (occurrence: CN)
  Receive Date: 20250904
  Receipt Date: 20250904
  Transmission Date: 20251020
  Serious: Yes (Hospitalization)
  Sender: ELI LILLY AND COMPANY
  Company Number: CN-Merck Healthcare KGaA-2025044095

PATIENT
  Age: 59 Year
  Sex: Male
  Weight: 69 kg

DRUGS (8)
  1. ERBITUX [Suspect]
     Active Substance: CETUXIMAB
     Indication: Colon cancer
     Route: 041
     Dates: start: 20250614, end: 20250614
  2. IRINOTECAN HYDROCHLORIDE [Suspect]
     Active Substance: IRINOTECAN HYDROCHLORIDE
     Indication: Colon cancer
     Dosage: 320 MG, DAILY
     Route: 041
     Dates: start: 20250614, end: 20250614
  3. FLUOROURACIL [Suspect]
     Active Substance: FLUOROURACIL
     Indication: Colon cancer
     Dosage: 0.75 G, DAILY
     Route: 042
     Dates: start: 20250614, end: 20250614
  4. FLUOROURACIL [Suspect]
     Active Substance: FLUOROURACIL
     Dosage: 4.5 G, DAILY
     Route: 042
     Dates: start: 20250614, end: 20250614
  5. SODIUM CHLORIDE [Concomitant]
     Active Substance: SODIUM CHLORIDE
     Indication: Colon cancer
     Route: 041
     Dates: start: 20250614, end: 20250614
  6. SODIUM CHLORIDE [Concomitant]
     Active Substance: SODIUM CHLORIDE
     Dosage: 20 ML, DAILY
     Route: 042
     Dates: start: 20250614, end: 20250614
  7. SODIUM CHLORIDE [Concomitant]
     Active Substance: SODIUM CHLORIDE
     Dosage: 50 ML, DAILY
     Route: 042
     Dates: start: 20250614, end: 20250614
  8. LEUCOVORIN CALCIUM [Concomitant]
     Active Substance: LEUCOVORIN CALCIUM
     Indication: Colon cancer
     Dosage: 750 MG, DAILY
     Route: 042

REACTIONS (1)
  - Myelosuppression [Recovering/Resolving]

NARRATIVE: CASE EVENT DATE: 20250623
